FAERS Safety Report 6887251-1 (Version None)
Quarter: 2010Q3

REPORT INFORMATION
  Report Type: 
  Country: None (occurrence: None)
  Receive Date: 20100730
  Receipt Date: 20100514
  Transmission Date: 20110219
  Serious: No
  Sender: FDA-Public Use
  Company Number: A0859769A

PATIENT
  Age: 79 Year
  Sex: Female

DRUGS (4)
  1. FLOVENT [Suspect]
     Indication: ILL-DEFINED DISORDER
     Dosage: 1PUFF PER DAY
     Route: 055
     Dates: start: 20100401
  2. COREG [Concomitant]
  3. AMIODARONE HCL [Concomitant]
  4. NORVASC [Concomitant]

REACTIONS (2)
  - OROPHARYNGEAL PAIN [None]
  - PRURITUS GENERALISED [None]
